FAERS Safety Report 8497407 (Version 3)
Quarter: 2012Q4

REPORT INFORMATION
  Report Type: Report from Study
  Country: JP (occurrence: JP)
  Receive Date: 20120406
  Receipt Date: 20120914
  Transmission Date: 20130627
  Serious: Yes (Hospitalization)
  Sender: FDA-Public Use
  Company Number: JP-JNJFOC-20120400977

PATIENT
  Age: 60 Year
  Sex: Female
  Weight: 52 kg

DRUGS (16)
  1. REMICADE [Suspect]
     Indication: COLITIS ULCERATIVE
     Route: 042
     Dates: start: 20111006
  2. REMICADE [Suspect]
     Indication: COLITIS ULCERATIVE
     Dosage: 4th dose
     Route: 042
     Dates: start: 20110825
  3. REMICADE [Suspect]
     Indication: COLITIS ULCERATIVE
     Dosage: third dose
     Route: 042
     Dates: start: 20110811
  4. REMICADE [Suspect]
     Indication: COLITIS ULCERATIVE
     Route: 042
     Dates: start: 20110714
  5. REMICADE [Suspect]
     Indication: COLITIS ULCERATIVE
     Dosage: first dose
     Route: 042
     Dates: start: 20110630
  6. PREDONINE [Suspect]
     Indication: COLITIS ULCERATIVE
     Route: 048
     Dates: start: 20110825, end: 20110906
  7. PREDONINE [Suspect]
     Indication: COLITIS ULCERATIVE
     Route: 048
     Dates: start: 20110811, end: 20110824
  8. PREDONINE [Suspect]
     Indication: COLITIS ULCERATIVE
     Route: 048
     Dates: start: 20110801, end: 20110810
  9. PREDONINE [Suspect]
     Indication: COLITIS ULCERATIVE
     Route: 048
     Dates: start: 20110714, end: 20110731
  10. PREDONINE [Suspect]
     Indication: COLITIS ULCERATIVE
     Route: 048
     Dates: start: 20110620, end: 20110713
  11. PREDONINE [Suspect]
     Indication: COLITIS ULCERATIVE
     Route: 048
     Dates: start: 20110907, end: 20110920
  12. PREDONINE [Suspect]
     Indication: COLITIS ULCERATIVE
     Route: 048
     Dates: start: 20110921, end: 20111005
  13. PREDONINE [Suspect]
     Indication: COLITIS ULCERATIVE
     Route: 048
     Dates: start: 20110528, end: 20110619
  14. FERRUM [Concomitant]
     Indication: ANAEMIA
     Route: 048
     Dates: start: 20110528, end: 20111005
  15. ASACOL [Concomitant]
     Indication: COLITIS ULCERATIVE
     Route: 048
     Dates: start: 201105, end: 20111201
  16. MIYA-BM [Concomitant]
     Indication: COLITIS ULCERATIVE
     Dosage: 6 Tab
     Route: 048
     Dates: end: 20111201

REACTIONS (1)
  - Herpes zoster [Recovered/Resolved]
